FAERS Safety Report 21355175 (Version 1)
Quarter: 2022Q3

REPORT INFORMATION
  Report Type: Spontaneous
  Country: US (occurrence: US)
  Receive Date: 20220920
  Receipt Date: 20220920
  Transmission Date: 20221026
  Serious: Yes (Hospitalization)
  Sender: FDA-Public Use
  Company Number: US-TAKEDA-2022TUS065857

PATIENT
  Sex: Female
  Weight: 99.773 kg

DRUGS (2)
  1. NINLARO [Suspect]
     Active Substance: IXAZOMIB CITRATE
     Indication: Plasma cell myeloma
     Dosage: 3 MILLIGRAM
     Route: 048
     Dates: start: 20220728
  2. REVLIMID [Concomitant]
     Active Substance: LENALIDOMIDE
     Dosage: 5 MILLIGRAM
     Route: 065

REACTIONS (1)
  - Abscess [Unknown]
